FAERS Safety Report 4556496-8 (Version None)
Quarter: 2005Q1

REPORT INFORMATION
  Report Type: 
  Country: None (occurrence: None)
  Receive Date: 20050118
  Receipt Date: 20050104
  Transmission Date: 20050727
  Serious: Yes (Hospitalization, Other)
  Sender: FDA-Public Use
  Company Number: HQWYE201416JUL04

PATIENT
  Age: 50 Year
  Sex: Female
  Weight: 99.88 kg

DRUGS (1)
  1. PREMPRO [Suspect]
     Indication: HORMONE REPLACEMENT THERAPY
     Dosage: ORAL
     Route: 048
     Dates: start: 19970401, end: 19971001

REACTIONS (10)
  - CEREBRAL THROMBOSIS [None]
  - DEEP VEIN THROMBOSIS [None]
  - EYE PAIN [None]
  - FEAR [None]
  - FEELING ABNORMAL [None]
  - FLASHBACK [None]
  - NAUSEA [None]
  - PULMONARY EMBOLISM [None]
  - SEDATION [None]
  - SUBARACHNOID HAEMORRHAGE [None]
